FAERS Safety Report 7830054-1 (Version None)
Quarter: 2011Q4

REPORT INFORMATION
  Report Type: 
  Country: None (occurrence: None)
  Receive Date: 20111021
  Receipt Date: 20111013
  Transmission Date: 20120403
  Serious: Yes (Hospitalization)
  Sender: FDA-Public Use
  Company Number: US-ASTELLAS-2011US006740

PATIENT
  Sex: Male
  Weight: 79 kg

DRUGS (7)
  1. MULTI-VITAMINS [Concomitant]
     Indication: ROUTINE HEALTH MAINTENANCE
     Dosage: 1 DF, QHS
     Route: 065
  2. ZOLPIDEM [Concomitant]
     Indication: INSOMNIA
     Dosage: 10 MG, QHS
     Route: 065
  3. LORTAB [Concomitant]
     Indication: PAIN
     Dosage: 1 - 2 TABS Q6 HOURS
  4. LEXAPRO [Concomitant]
     Indication: DEPRESSION
     Dosage: 10 MG, UID/QD
     Route: 065
  5. HYDROCORTISONE [Concomitant]
     Indication: RENAL FAILURE
     Dosage: 10 MG, BID
     Route: 065
     Dates: start: 20090401
  6. ERLOTINIB HYDROCHLORIDE [Suspect]
     Indication: NON-SMALL CELL LUNG CANCER
     Dosage: 150 MG, UNKNOWN/D
     Route: 048
     Dates: start: 20090828, end: 20100111
  7. SORAFENIB [Suspect]
     Indication: NON-SMALL CELL LUNG CANCER
     Dosage: 200 MG, UNKNOWN/D
     Route: 065
     Dates: start: 20090911, end: 20100111

REACTIONS (2)
  - DEEP VEIN THROMBOSIS [None]
  - PULMONARY EMBOLISM [None]
